FAERS Safety Report 10234782 (Version 1)
Quarter: 2014Q2

REPORT INFORMATION
  Report Type: Spontaneous
  Country: US (occurrence: None)
  Receive Date: 20140611
  Receipt Date: 20140611
  Transmission Date: 20141212
  Serious: Yes (Hospitalization)
  Sender: FDA-Public Use
  Company Number: None

PATIENT
  Age: 46 Year
  Sex: Female
  Weight: 104.33 kg

DRUGS (4)
  1. SEASONALE [Suspect]
     Indication: MENORRHAGIA
     Route: 048
  2. LEXAPRO [Concomitant]
  3. METOPROLOL [Concomitant]
  4. OMEPRAOLE [Concomitant]

REACTIONS (1)
  - Pulmonary embolism [None]
